FAERS Safety Report 7332242-X (Version None)
Quarter: 2011Q1

REPORT INFORMATION
  Report Type: 
  Country: None (occurrence: None)
  Receive Date: 20110304
  Receipt Date: 20110221
  Transmission Date: 20110831
  Serious: Yes (Other)
  Sender: FDA-Public Use
  Company Number: AU-JNJFOC-20110208136

PATIENT
  Sex: Female

DRUGS (7)
  1. EPILIM [Concomitant]
     Indication: DRUG THERAPY
     Route: 048
  2. RISPERDONE [Suspect]
     Indication: PSYCHOTIC DISORDER
     Route: 048
  3. TEMAZEPAM [Concomitant]
     Indication: SEDATIVE THERAPY
     Route: 048
  4. DIAZEPAM [Concomitant]
     Indication: SEDATION
     Route: 048
  5. DIAZEPAM [Concomitant]
     Indication: ANXIETY
     Route: 048
  6. FOLATE [Concomitant]
     Indication: NUTRITIONAL SUPPORT
     Route: 048
  7. SUBUTEX [Concomitant]
     Indication: DRUG DEPENDENCE
     Route: 048

REACTIONS (2)
  - DRUG EXPOSURE DURING PREGNANCY [None]
  - ARRESTED LABOUR [None]
